FAERS Safety Report 13032893 (Version 1)
Quarter: 2016Q4

REPORT INFORMATION
  Report Type: Spontaneous
  Country: US (occurrence: US)
  Receive Date: 20161215
  Receipt Date: 20161215
  Transmission Date: 20170207
  Serious: No
  Sender: FDA-Public Use
  Company Number: US-BION-20160426

PATIENT
  Age: 53 Year
  Sex: Female
  Weight: 65.77 kg

DRUGS (3)
  1. PROGESTERONE CAPSULES [Suspect]
     Active Substance: PROGESTERONE
     Dosage: 1 DF QD
     Dates: start: 20160808
  2. ARMOUR THYROID [Concomitant]
     Active Substance: THYROID, PORCINE
  3. ESTRADIOL .05 PATCH [Concomitant]

REACTIONS (4)
  - Psychomotor hyperactivity [Unknown]
  - Product substitution issue [None]
  - Initial insomnia [Unknown]
  - Product use issue [Unknown]
